FAERS Safety Report 9956659 (Version 1)
Quarter: 2014Q1

REPORT INFORMATION
  Report Type: Report from Study
  Country: US (occurrence: US)
  Receive Date: 20140304
  Receipt Date: 20140304
  Transmission Date: 20141002
  Serious: No
  Sender: FDA-Public Use
  Company Number: US-ABBVIE-13P-163-1099061-00

PATIENT
  Sex: Male
  Weight: 106.69 kg

DRUGS (5)
  1. HUMIRA [Suspect]
     Indication: CROHN^S DISEASE
     Route: 058
     Dates: start: 2010
  2. HUMIRA [Suspect]
     Indication: ANKYLOSING SPONDYLITIS
  3. NORVASE (AMLODIPINE) [Concomitant]
     Indication: HYPERTENSION
     Route: 048
  4. PHENERGAN (PROMETHAZINE) [Concomitant]
     Indication: NAUSEA
     Dosage: AS NEEDED
     Route: 048
  5. DIAZEPAN [Concomitant]
     Indication: ANXIETY
     Route: 048

REACTIONS (2)
  - Crohn^s disease [Recovered/Resolved]
  - Pain [Not Recovered/Not Resolved]
